FAERS Safety Report 8612673-8 (Version None)
Quarter: 2012Q3

REPORT INFORMATION
  Report Type: 
  Country: None (occurrence: None)
  Receive Date: 20120822
  Receipt Date: 20110926
  Transmission Date: 20120928
  Serious: No
  Sender: FDA-Public Use
  Company Number: US-ASTRAZENECA-2011SE57773

PATIENT
  Age: 60 Year
  Sex: Female
  Weight: 53.5 kg

DRUGS (5)
  1. SYMBICORT [Suspect]
     Indication: ASTHMA
     Dosage: 80/4.5 MCG, 2 PUFFS TWO TIMES A DAY
     Route: 055
     Dates: start: 20110924
  2. SYMBICORT [Suspect]
     Dosage: 80/4.5 MCG, 1 PUFF TWO TIMES A DAY
     Route: 055
  3. SYMBICORT [Suspect]
     Dosage: 80/4.5 MCG, 1 PUFF TWO TIMES A DAY
     Route: 055
  4. AMLODIPINE [Concomitant]
  5. SYMBICORT [Suspect]
     Indication: CHRONIC OBSTRUCTIVE PULMONARY DISEASE
     Dosage: 80/4.5 MCG, 2 PUFFS TWO TIMES A DAY
     Route: 055
     Dates: start: 20110924

REACTIONS (4)
  - NERVOUSNESS [None]
  - DIZZINESS [None]
  - INCORRECT DOSE ADMINISTERED [None]
  - BLOOD PRESSURE DIASTOLIC DECREASED [None]
